FAERS Safety Report 20688055 (Version 2)
Quarter: 2022Q2

REPORT INFORMATION
  Report Type: Spontaneous
  Country: JP (occurrence: JP)
  Receive Date: 20220408
  Receipt Date: 20220414
  Transmission Date: 20220720
  Serious: Yes (Death, Hospitalization)
  Sender: FDA-Public Use
  Company Number: JP-Teva Takeda Yakuhin-2022-JP-001451J

PATIENT
  Age: 92 Year
  Sex: Male

DRUGS (15)
  1. CERCINE [Suspect]
     Active Substance: DIAZEPAM
     Indication: Product administration error
     Dosage: 10 MILLIGRAM DAILY; CERCINE INJECTION AT 10 MG AFTER CERCINE INJECTION WAS DISSOLVED IN 100 ML OF SA
     Route: 042
     Dates: start: 20220330, end: 20220330
  2. SODIUM CHLORIDE [Concomitant]
     Active Substance: SODIUM CHLORIDE
     Dosage: 100 ML DAILY;
     Route: 065
  3. AMPICILLIN SODIUM\SULBACTAM SODIUM [Concomitant]
     Active Substance: AMPICILLIN SODIUM\SULBACTAM SODIUM
     Dosage: 6 MILLIGRAM DAILY;
     Route: 042
  4. REPLAS1 [Concomitant]
     Dosage: 1000 ML DAILY;
     Route: 041
  5. LANSOPRAZOLE [Concomitant]
     Active Substance: LANSOPRAZOLE
     Dosage: 15 MILLIGRAM DAILY;
     Route: 048
  6. AMVALO OD [Concomitant]
     Route: 048
  7. DULOXETINE HYDROCHLORIDE [Concomitant]
     Active Substance: DULOXETINE HYDROCHLORIDE
     Route: 065
  8. MIRABEGRON [Concomitant]
     Active Substance: MIRABEGRON
     Route: 065
  9. SARPOGRELATE HYDROCHLORIDE [Concomitant]
     Active Substance: SARPOGRELATE HYDROCHLORIDE
     Route: 065
  10. RHUBARB [Concomitant]
     Active Substance: RHUBARB
     Route: 065
  11. ACETAMINOPHEN\TRAMADOL HYDROCHLORIDE [Concomitant]
     Active Substance: ACETAMINOPHEN\TRAMADOL HYDROCHLORIDE
     Route: 065
  12. MOVICOL [Concomitant]
     Active Substance: POLYETHYLENE GLYCOL 3350\POTASSIUM CHLORIDE\SODIUM BICARBONATE\SODIUM CHLORIDE
     Route: 065
  13. TSUMURA KEISHITO EXTRACT GRANULES FOR ETHICAL USE [Concomitant]
     Route: 065
  14. TSUMURA EPPIKAJUTSUTO EXTRACT GRANULES FOR ETHICAL USE [Concomitant]
     Route: 065
  15. HERBALS [Concomitant]
     Active Substance: HERBALS
     Route: 065

REACTIONS (5)
  - Death [Fatal]
  - Depressed level of consciousness [Recovered/Resolved]
  - Dyspnoea [Unknown]
  - Product administration error [Unknown]
  - Product preparation issue [Unknown]

NARRATIVE: CASE EVENT DATE: 20220330
